FAERS Safety Report 7952292-X (Version None)
Quarter: 2011Q4

REPORT INFORMATION
  Report Type: 
  Country: None (occurrence: None)
  Receive Date: 20111201
  Receipt Date: 20111117
  Transmission Date: 20120403
  Serious: Yes (Hospitalization, Other)
  Sender: FDA-Public Use
  Company Number: US-ACTELION-A-US2011-45184

PATIENT

DRUGS (9)
  1. LASIX [Concomitant]
  2. COUMADIN [Concomitant]
  3. DIPHENHYDRAMINE HCL [Concomitant]
  4. EPOPROSTENOL SODIUM [Suspect]
     Indication: PULMONARY ARTERIAL HYPERTENSION
     Dosage: 40 NG/KG, PER MIN
     Route: 042
     Dates: start: 20100706
  5. DIGOXIN [Concomitant]
  6. HEPARIN [Concomitant]
  7. OMEPRAZOLE [Concomitant]
  8. EPIPEN [Concomitant]
  9. TRACLEER [Concomitant]
     Indication: PULMONARY ARTERIAL HYPERTENSION
     Dosage: UNK
     Route: 048
     Dates: start: 20060321

REACTIONS (7)
  - BACTERAEMIA [None]
  - DEVICE RELATED INFECTION [None]
  - NASOPHARYNGITIS [None]
  - CORYNEBACTERIUM INFECTION [None]
  - CENTRAL VENOUS CATHETER REMOVAL [None]
  - VULVOVAGINAL PRURITUS [None]
  - ASTHMA [None]
